FAERS Safety Report 7360448-2 (Version None)
Quarter: 2011Q1

REPORT INFORMATION
  Report Type: 
  Country: None (occurrence: None)
  Receive Date: 20110318
  Receipt Date: 20110121
  Transmission Date: 20110831
  Serious: Yes (Hospitalization, Other)
  Sender: FDA-Public Use
  Company Number: US-BAYER-2011-023323

PATIENT
  Sex: Female
  Weight: 90.703 kg

DRUGS (2)
  1. YAZ [Suspect]
     Indication: CONTRACEPTION
     Dosage: 1 DF, QD
     Dates: start: 20030101, end: 20060101
  2. YASMIN [Suspect]
     Indication: CONTRACEPTION
     Dosage: 1 DF, QD
     Dates: start: 20030101, end: 20060101

REACTIONS (1)
  - CHOLECYSTITIS [None]
